FAERS Safety Report 6733428-5 (Version None)
Quarter: 2010Q2

REPORT INFORMATION
  Report Type: 
  Country: None (occurrence: None)
  Receive Date: 20100520
  Receipt Date: 20100510
  Transmission Date: 20101027
  Serious: Yes (Hospitalization)
  Sender: FDA-Public Use
  Company Number: NL-TYCO HEALTHCARE/MALLINCKRODT-T201001218

PATIENT
  Age: 33 Year
  Sex: Male

DRUGS (13)
  1. NALTREXONE HYDROCHLORIDE [Suspect]
     Indication: DRUG DETOXIFICATION
     Dosage: 100 MG, PRIOR TO ANAESTHESIA
     Route: 048
  2. NALTREXONE HYDROCHLORIDE [Suspect]
     Dosage: 100 MG, AT THE END OF ANAESTHESIA
  3. CLONIDINE [Suspect]
     Indication: PREMEDICATION
     Dosage: 0.3 MG
     Route: 048
  4. DICLOFENAC [Suspect]
     Indication: PAIN PROPHYLAXIS
     Dosage: 50 MG
     Route: 048
  5. ONDANSETRON [Suspect]
     Indication: PROPHYLAXIS OF NAUSEA AND VOMITING
     Dosage: 4 MG
     Route: 048
  6. DIAZEPAM [Suspect]
     Indication: ANXIETY
     Dosage: 10 MG
     Route: 048
  7. SODIUM CHLORIDE [Suspect]
     Dosage: 1-1.5 L/HOUR
     Route: 042
  8. GLUCOSE [Suspect]
     Dosage: 1-1.5 L/HOUR
     Route: 042
  9. TROPISETRON [Suspect]
     Indication: PROPHYLAXIS OF NAUSEA AND VOMITING
     Dosage: 5 MG
     Route: 042
  10. PROPOFOL [Suspect]
     Indication: GENERAL ANAESTHESIA
     Dosage: 5000 NG/ML USING TARGET-CONTROLLED INFUSION METHOD, MAINTAINED FOR 4 HOURS
  11. GALLAMINE [Suspect]
     Indication: MYOCLONUS
     Dosage: 10 MG
  12. SUCCINYL CHOLINE [Suspect]
     Indication: MYOCLONUS
     Dosage: 0.8-1.0 MG/KG
  13. METHADONE [Concomitant]
     Indication: DRUG DEPENDENCE
     Dosage: UNK

REACTIONS (1)
  - PNEUMONIA ASPIRATION [None]
